FAERS Safety Report 11188851 (Version 1)
Quarter: 2015Q2

REPORT INFORMATION
  Report Type: Spontaneous
  Country: US (occurrence: None)
  Receive Date: 20150611
  Receipt Date: 20150611
  Transmission Date: 20150821
  Serious: Yes (Life-Threatening, Hospitalization)
  Sender: FDA-Public Use
  Company Number: PD-NAP-US-2015-009

PATIENT
  Age: 71 Year
  Sex: Male

DRUGS (13)
  1. AVASTIN [Concomitant]
     Active Substance: BEVACIZUMAB
  2. ISOSORBIDE MONONITRATE. [Concomitant]
     Active Substance: ISOSORBIDE MONONITRATE
  3. LUCENTIS [Concomitant]
     Active Substance: RANIBIZUMAB
  4. CYANOCOBALAMIN. [Concomitant]
     Active Substance: CYANOCOBALAMIN
  5. ERGOCALCIFEROL. [Concomitant]
     Active Substance: ERGOCALCIFEROL
  6. CALCIPROTRIENE (CREAM) (CALCIPOTRIOL) [Concomitant]
  7. SIMVASTATIN. [Concomitant]
     Active Substance: SIMVASTATIN
  8. ASPIRIN (UNKNOWN) (ACETYLSALICYLIC ACID) [Concomitant]
  9. NAPROXEN. [Suspect]
     Active Substance: NAPROXEN
     Indication: PRODUCT USED FOR UNKNOWN INDICATION
  10. ALBUTEROL (UNKNOWN) (SALBUTAMOL) [Concomitant]
  11. METFORMIN [Concomitant]
     Active Substance: METFORMIN HYDROCHLORIDE
  12. MULTIVITAMINS (UNKNOWN) (VITAMINS NOS) [Concomitant]
  13. LISINOPRIL. [Concomitant]
     Active Substance: LISINOPRIL

REACTIONS (2)
  - Drug hypersensitivity [None]
  - Thrombocytopenia [None]

NARRATIVE: CASE EVENT DATE: 2014
